FAERS Safety Report 19795249 (Version 1)
Quarter: 2021Q3

REPORT INFORMATION
  Report Type: Spontaneous
  Country: NL (occurrence: NL)
  Receive Date: 20210907
  Receipt Date: 20210907
  Transmission Date: 20211014
  Serious: Yes (Disabling, Other)
  Sender: FDA-Public Use
  Company Number: NL-AUROBINDO-AUR-APL-2021-037573

PATIENT
  Sex: Female
  Weight: 56 kg

DRUGS (3)
  1. QUETIAPINE FILM?COATED TABLETS 100MG [Suspect]
     Active Substance: QUETIAPINE FUMARATE
     Indication: RESTLESSNESS
     Dosage: 25 MILLIGRAM, ONCE A DAY (DIVIDE PILL BY FOUR)
     Route: 065
     Dates: start: 2017
  2. PAROXETINE. [Suspect]
     Active Substance: PAROXETINE
     Indication: ANXIETY
  3. PAROXETINE. [Suspect]
     Active Substance: PAROXETINE
     Indication: DEPRESSION
     Dosage: 30 MILLIGRAM, ONCE A DAY
     Route: 065
     Dates: start: 201703, end: 20190516

REACTIONS (2)
  - Electric shock sensation [Recovered/Resolved]
  - Fatigue [Recovering/Resolving]
